FAERS Safety Report 13112709 (Version 2)
Quarter: 2017Q1

REPORT INFORMATION
  Report Type: Spontaneous
  Country: JP (occurrence: JP)
  Receive Date: 20170113
  Receipt Date: 20170206
  Transmission Date: 20170428
  Serious: Yes (Other)
  Sender: FDA-Public Use
  Company Number: JP-ASTELLAS-2016JP022933

PATIENT
  Age: 41 Year
  Sex: Male

DRUGS (4)
  1. MYCOPHENOLATE MOFETIL. [Concomitant]
     Active Substance: MYCOPHENOLATE MOFETIL
     Indication: PROPHYLAXIS AGAINST GRAFT VERSUS HOST DISEASE
     Dosage: UNK UNK, UNKNOWN FREQ.
     Route: 065
  2. FLUDARABINE [Concomitant]
     Active Substance: FLUDARABINE PHOSPHATE
     Indication: CORD BLOOD TRANSPLANT THERAPY
     Route: 065
  3. PROGRAF [Suspect]
     Active Substance: TACROLIMUS\TACROLIMUS ANHYDROUS
     Indication: PROPHYLAXIS AGAINST GRAFT VERSUS HOST DISEASE
     Dosage: UNK UNK, UNKNOWN FREQ.
     Route: 048
  4. MELPHALAN [Concomitant]
     Active Substance: MELPHALAN
     Indication: CORD BLOOD TRANSPLANT THERAPY
     Route: 065

REACTIONS (4)
  - Pre-engraftment immune reaction [Recovering/Resolving]
  - Acute graft versus host disease in skin [Recovering/Resolving]
  - Anaplastic large-cell lymphoma [Recovered/Resolved]
  - Viral haemorrhagic cystitis [Recovering/Resolving]
